FAERS Safety Report 11990494 (Version 2)
Quarter: 2016Q1

REPORT INFORMATION
  Report Type: Spontaneous
  Country: JP (occurrence: JP)
  Receive Date: 20160202
  Receipt Date: 20160205
  Transmission Date: 20160526
  Serious: Yes (Death)
  Sender: FDA-Public Use
  Company Number: JP-PFIZER INC-2016057593

PATIENT
  Age: 80 Year
  Sex: Female

DRUGS (8)
  1. VFEND [Suspect]
     Active Substance: VORICONAZOLE
     Dosage: 400 MG, DAILY
     Route: 048
     Dates: start: 20151013, end: 20151021
  2. METOCLOPRAMIDE. [Concomitant]
     Active Substance: METOCLOPRAMIDE
     Dosage: 5 MG, UNK
  3. SPIRONOLACTONE. [Concomitant]
     Active Substance: SPIRONOLACTONE
     Dosage: 25 MG, UNK
  4. VFEND [Suspect]
     Active Substance: VORICONAZOLE
     Dosage: 300 MG, DAILY
     Route: 048
     Dates: start: 20151022, end: 20160108
  5. VFEND [Suspect]
     Active Substance: VORICONAZOLE
     Indication: MYCOTIC ENDOPHTHALMITIS
     Dosage: 600 MG, DAILY
     Route: 048
     Dates: start: 20151012, end: 20151012
  6. FENTANYL. [Concomitant]
     Active Substance: FENTANYL
     Route: 061
  7. BROTIZOLAM [Concomitant]
     Active Substance: BROTIZOLAM
     Dosage: 0.25 MG, UNK
  8. RAMUCIRUMAB [Concomitant]
     Active Substance: RAMUCIRUMAB
     Route: 041

REACTIONS (2)
  - Disease progression [Fatal]
  - Gastric cancer [Fatal]

NARRATIVE: CASE EVENT DATE: 20160123
